FAERS Safety Report 17680740 (Version 10)
Quarter: 2021Q4

REPORT INFORMATION
  Report Type: Spontaneous
  Country: CA (occurrence: CA)
  Receive Date: 20200417
  Receipt Date: 20211122
  Transmission Date: 20220303
  Serious: Yes (Hospitalization, Other)
  Sender: FDA-Public Use
  Company Number: CA-ANIPHARMA-2020-CA-000419

PATIENT
  Age: 78 Year
  Sex: Female
  Weight: 93 kg

DRUGS (47)
  1. CANDESARTAN CILEXETIL [Suspect]
     Active Substance: CANDESARTAN CILEXETIL
     Indication: Product used for unknown indication
     Dosage: 8 MG QD
     Route: 048
  2. NITROGLYCERIN [Suspect]
     Active Substance: NITROGLYCERIN
     Route: 065
  3. INFLUENZA VIRUS VACCINE [Suspect]
     Active Substance: INFLUENZA VIRUS VACCINE
     Route: 065
  4. ATROVENT [Suspect]
     Active Substance: IPRATROPIUM BROMIDE
     Route: 065
  5. LANSOPRAZOLE [Suspect]
     Active Substance: LANSOPRAZOLE
     Route: 065
  6. LEVOTHYROXINE SODIUM [Suspect]
     Active Substance: LEVOTHYROXINE SODIUM
     Route: 065
  7. SYNTHROID [Suspect]
     Active Substance: LEVOTHYROXINE SODIUM
     Route: 065
  8. MEPOLIZUMAB [Suspect]
     Active Substance: MEPOLIZUMAB
     Dosage: 100 MG UNK / 100 MG UNK / 100 MG UNK / 100 MG UNK / 100 MG UNK / 100 MG UNK / 100 MG UNK / 100 /MG U
     Route: 042
  9. NASONEX [Suspect]
     Active Substance: MOMETASONE FUROATE
     Route: 065
  10. MONTELUKAST [Suspect]
     Active Substance: MONTELUKAST SODIUM
     Dosage: 10 MG QD / 10 MG QD / 10 MG QD
     Route: 048
  11. SINGULAIR [Suspect]
     Active Substance: MONTELUKAST SODIUM
     Dosage: 100 MG QD / 100 MG QD
     Route: 065
  12. BUDESONIDE [Suspect]
     Active Substance: BUDESONIDE
     Route: 055
  13. MORPHINE [Suspect]
     Active Substance: MORPHINE
     Dosage: 10 MG UNK
     Route: 065
  14. MORPHINE SULFATE [Suspect]
     Active Substance: MORPHINE SULFATE
     Dosage: 10 MG UNK
     Route: 048
  15. XOLAIR [Suspect]
     Active Substance: OMALIZUMAB
     Route: 065
  16. PANTOPRAZOLE SODIUM [Suspect]
     Active Substance: PANTOPRAZOLE SODIUM
     Route: 065
  17. ACETAMINOPHEN [Suspect]
     Active Substance: ACETAMINOPHEN
     Dosage: 1000 MG UNK
     Route: 065
  18. PREVNAR [Suspect]
     Active Substance: PNEUMOCOCCAL 7-VALENT CONJUGATE VACCINE (DIPHTHERIA CRM197 PROTEIN)
     Route: 065
  19. PRAMIPEXOLE [Suspect]
     Active Substance: PRAMIPEXOLE
     Dosage: .25 MG UNK / .5 MG UNK
     Route: 048
  20. PREGABALIN [Suspect]
     Active Substance: PREGABALIN
     Dosage: 75 MG UNK / UNK
     Route: 048
  21. RANITIDINE [Suspect]
     Active Substance: RANITIDINE
     Route: 065
  22. RISEDRONATE SODIUM [Suspect]
     Active Substance: RISEDRONATE SODIUM
     Route: 065
  23. SYMBICORT [Suspect]
     Active Substance: BUDESONIDE\FORMOTEROL FUMARATE DIHYDRATE
     Dosage: 2 DOSAGE FORM, TWO TIMES A DAY
     Route: 055
  24. VENTOLIN [Suspect]
     Active Substance: ALBUTEROL SULFATE
     Route: 065
  25. SENOKOT [Suspect]
     Active Substance: SENNOSIDES
     Route: 048
  26. SENNOSIDES A AND B [Suspect]
     Active Substance: SENNOSIDES A AND B
     Dosage: 8.6 MG UNK
     Route: 065
  27. SPIRIVA [Suspect]
     Active Substance: TIOTROPIUM BROMIDE MONOHYDRATE
     Dosage: 1 DF QD
     Route: 065
  28. TRAZODONE [Suspect]
     Active Substance: TRAZODONE HYDROCHLORIDE
     Dosage: 12.5 MG UNK / 10 MG UNK
     Route: 065
  29. VITAMIN D NOS [Suspect]
     Active Substance: VITAMIN D NOS
     Route: 048
  30. ZOPICLONE [Suspect]
     Active Substance: ZOPICLONE
     Route: 065
  31. SENNA LEAF [Suspect]
     Active Substance: SENNA LEAF
     Route: 065
  32. MOMETASONE FUROATE [Suspect]
     Active Substance: MOMETASONE FUROATE
     Route: 065
  33. NITROGLYCERIN [Suspect]
     Active Substance: NITROGLYCERIN
     Route: 065
  34. QUETIAPINE [Suspect]
     Active Substance: QUETIAPINE
     Route: 048
  35. PANTOPRAZOLE [Suspect]
     Active Substance: PANTOPRAZOLE
     Route: 065
  36. TIOTROPIUM BROMIDE [Suspect]
     Active Substance: TIOTROPIUM BROMIDE
     Route: 065
  37. PNEUMOCOCCAL VACCINE POLYVALENT NOS [Suspect]
     Active Substance: PNEUMOCOCCAL VACCINE POLYVALENT
     Route: 065
  38. ALBUTEROL [Suspect]
     Active Substance: ALBUTEROL
     Route: 065
  39. OMALIZUMAB [Suspect]
     Active Substance: OMALIZUMAB
     Route: 065
  40. BUDESONIDE [Suspect]
     Active Substance: BUDESONIDE
     Route: 065
  41. MORPHINE HYDROCHLORIDE [Suspect]
     Active Substance: MORPHINE HYDROCHLORIDE
     Route: 065
  42. BISACODYL [Suspect]
     Active Substance: BISACODYL
     Route: 065
  43. ROSUVASTATIN CALCIUM [Suspect]
     Active Substance: ROSUVASTATIN CALCIUM
     Route: 048
  44. AZITHROMYCIN [Suspect]
     Active Substance: AZITHROMYCIN
     Route: 065
  45. DEXILANT [Suspect]
     Active Substance: DEXLANSOPRAZOLE
     Route: 065
  46. DOMPERIDONE [Suspect]
     Active Substance: DOMPERIDONE
     Route: 065
  47. EFINACONAZOLE [Suspect]
     Active Substance: EFINACONAZOLE
     Route: 065

REACTIONS (41)
  - Anaemia [Not Recovered/Not Resolved]
  - Hypoxia [Not Recovered/Not Resolved]
  - Lower respiratory tract infection [Not Recovered/Not Resolved]
  - Lung opacity [Unknown]
  - Musculoskeletal stiffness [Unknown]
  - Obstructive airways disorder [Unknown]
  - Pleural effusion [Unknown]
  - Pneumonia [Not Recovered/Not Resolved]
  - Pulmonary fibrosis [Not Recovered/Not Resolved]
  - Rales [Unknown]
  - Sputum discoloured [Unknown]
  - Aspiration [Not Recovered/Not Resolved]
  - Total lung capacity decreased [Unknown]
  - Upper respiratory tract infection [Not Recovered/Not Resolved]
  - Wheezing [Unknown]
  - Pain [Not Recovered/Not Resolved]
  - Abdominal pain upper [Not Recovered/Not Resolved]
  - Dyspnoea [Not Recovered/Not Resolved]
  - Oedema peripheral [Not Recovered/Not Resolved]
  - Pyrexia [Unknown]
  - Constipation [Not Recovered/Not Resolved]
  - Asthenia [Not Recovered/Not Resolved]
  - Asthma [Not Recovered/Not Resolved]
  - Fatigue [Not Recovered/Not Resolved]
  - Tremor [Unknown]
  - Headache [Not Recovered/Not Resolved]
  - Drug hypersensitivity [Not Recovered/Not Resolved]
  - Blood creatinine increased [Not Recovered/Not Resolved]
  - Transaminases increased [Unknown]
  - Liver function test increased [Not Recovered/Not Resolved]
  - Cough [Not Recovered/Not Resolved]
  - Drug ineffective [Not Recovered/Not Resolved]
  - Blood calcium increased [Not Recovered/Not Resolved]
  - General physical health deterioration [Not Recovered/Not Resolved]
  - Pulmonary mass [Not Recovered/Not Resolved]
  - Product dose omission issue [Not Recovered/Not Resolved]
  - Blood test abnormal [Not Recovered/Not Resolved]
  - Bronchiectasis [Not Recovered/Not Resolved]
  - Bronchopulmonary aspergillosis allergic [Not Recovered/Not Resolved]
  - Gastrooesophageal reflux disease [Not Recovered/Not Resolved]
  - Haemoptysis [Not Recovered/Not Resolved]
